FAERS Safety Report 4976824-9 (Version None)
Quarter: 2006Q2

REPORT INFORMATION
  Report Type: 
  Country: None (occurrence: None)
  Receive Date: 20060413
  Receipt Date: 20060403
  Transmission Date: 20061013
  Serious: Yes (Other)
  Sender: FDA-Public Use
  Company Number: 2006045684

PATIENT
  Age: 37 Year
  Sex: Female
  Weight: 79.3795 kg

DRUGS (2)
  1. EMETROL (GLUCOSE, FRUCTOSE, PHOSPHORIC ACID) [Suspect]
     Indication: NAUSEA
     Dosage: 1 TABLESPOON; 5 TIMES, ORAL
     Route: 048
     Dates: start: 20060402, end: 20060402
  2. BISMUTH SUBSALICYLATE (BISMUTH SUBSALICYLATE) [Suspect]
     Indication: NAUSEA
     Dosage: ORAL
     Route: 048
     Dates: start: 20060402

REACTIONS (2)
  - DRUG INEFFECTIVE [None]
  - GASTROINTESTINAL INFECTION [None]
